FAERS Safety Report 9867969 (Version 1)
Quarter: 2014Q1

REPORT INFORMATION
  Report Type: Spontaneous
  Country: GB (occurrence: GB)
  Receive Date: 20140204
  Receipt Date: 20140204
  Transmission Date: 20141002
  Serious: Yes (Hospitalization)
  Sender: FDA-Public Use
  Company Number: GB-PFIZER INC-2014030433

PATIENT
  Age: 75 Year
  Sex: Female

DRUGS (12)
  1. PHENYTOIN [Suspect]
     Indication: EPILEPSY
     Dosage: 300 MG, UNK
     Route: 048
  2. CALCIUM CARBONATE/COLECALCIFEROL [Concomitant]
     Dosage: UNK
  3. ALENDRONATE SODIUM [Concomitant]
     Dosage: UNK
  4. AMLODIPINE [Concomitant]
     Dosage: UNK
  5. CODEINE PHOSPHATE [Concomitant]
     Dosage: UNK
  6. DIAZEPAM [Concomitant]
     Dosage: UNK
  7. DONEPEZIL [Concomitant]
     Dosage: UNK
  8. DULOXETINE [Concomitant]
     Dosage: UNK
  9. MIRTAZAPINE [Concomitant]
     Dosage: UNK
  10. RANITIDINE [Concomitant]
     Dosage: UNK
  11. RISPERIDONE [Concomitant]
     Dosage: UNK
  12. SIMVASTATIN [Concomitant]
     Dosage: UNK

REACTIONS (2)
  - Urticaria [Recovered/Resolved]
  - Lip swelling [Unknown]
